FAERS Safety Report 21734647 (Version 1)
Quarter: 2022Q4

REPORT INFORMATION
  Report Type: Spontaneous
  Country: US (occurrence: US)
  Receive Date: 20221215
  Receipt Date: 20221215
  Transmission Date: 20230112
  Serious: No
  Sender: FDA-Public Use
  Company Number: US-PFIZER INC-PV202200048301

PATIENT
  Age: 77 Year
  Sex: Male
  Weight: 88.435 kg

DRUGS (3)
  1. VYNDAMAX [Suspect]
     Active Substance: TAFAMIDIS
     Indication: Cardiac amyloidosis
     Dosage: 61 MG, 1X/DAY
     Route: 048
     Dates: end: 202212
  2. LEVOTHYROXINE [Concomitant]
     Active Substance: LEVOTHYROXINE
     Dosage: 25 UG, 1X/DAY (HASN^T BEEN TAKING THE MEDICATION CORRECTLY SO)
     Route: 048
  3. ATORVASTATIN [Concomitant]
     Active Substance: ATORVASTATIN
     Dosage: 40 MG, 1X/DAY
     Route: 048
     Dates: start: 202203

REACTIONS (4)
  - Malaise [Unknown]
  - Mental disorder [Unknown]
  - Weight decreased [Not Recovered/Not Resolved]
  - Hypotonia [Unknown]

NARRATIVE: CASE EVENT DATE: 20220301
